FAERS Safety Report 25234005 (Version 1)
Quarter: 2025Q2

REPORT INFORMATION
  Report Type: Spontaneous
  Country: US (occurrence: US)
  Receive Date: 20250424
  Receipt Date: 20250424
  Transmission Date: 20250716
  Serious: Yes (Other)
  Sender: LUOXIN AUROVITAS PHARMA(CHENGDU)
  Company Number: US-LUOXIN-LUX-2025-US-LIT-00006

PATIENT
  Age: 30 Year
  Sex: Male

DRUGS (4)
  1. ALBUTEROL SULFATE [Suspect]
     Active Substance: ALBUTEROL SULFATE
     Indication: Asthma
     Route: 065
  2. RACEPINEPHRINE [Suspect]
     Active Substance: RACEPINEPHRINE
     Indication: Asthma
     Route: 065
  3. MAGNESIUM [Suspect]
     Active Substance: MAGNESIUM
     Indication: Asthma
     Route: 042
  4. KETAMINE [Suspect]
     Active Substance: KETAMINE
     Indication: Asthmatic crisis
     Route: 065

REACTIONS (1)
  - Drug ineffective [Unknown]
